FAERS Safety Report 13362336 (Version 1)
Quarter: 2017Q1

REPORT INFORMATION
  Report Type: Spontaneous
  Country: US (occurrence: US)
  Receive Date: 20170323
  Receipt Date: 20170323
  Transmission Date: 20170429
  Serious: No
  Sender: FDA-Public Use
  Company Number: US-TAKEDA-2017TUS005861

PATIENT
  Sex: Male
  Weight: 87.75 kg

DRUGS (7)
  1. METHYLPHENIDATE. [Concomitant]
     Active Substance: METHYLPHENIDATE
     Indication: DEPRESSION
     Dosage: 20 MG, TID
     Route: 048
  2. TAMSULOSIN [Concomitant]
     Active Substance: TAMSULOSIN
     Indication: MICTURITION URGENCY
     Dosage: 0.4 MG, QD
     Route: 048
  3. FINASTERIDE. [Concomitant]
     Active Substance: FINASTERIDE
     Indication: PROSTATIC DISORDER
     Dosage: 5 MG, QD
     Route: 048
  4. BUPROPION. [Concomitant]
     Active Substance: BUPROPION
     Indication: DEPRESSION
     Dosage: 150 MG, TID
     Route: 048
  5. DEXILANT [Suspect]
     Active Substance: DEXLANSOPRAZOLE
     Indication: EROSIVE OESOPHAGITIS
     Dosage: 60 MG, QD
     Route: 048
     Dates: start: 20170223, end: 201703
  6. ESCITALOPRAM [Interacting]
     Active Substance: ESCITALOPRAM OXALATE
     Indication: DEPRESSION
     Dosage: 20 MG, UNK
     Route: 048
  7. VIBERZI [Suspect]
     Active Substance: ELUXADOLINE
     Indication: IRRITABLE BOWEL SYNDROME
     Dosage: UNK
     Route: 065

REACTIONS (1)
  - Diarrhoea [Not Recovered/Not Resolved]
